FAERS Safety Report 9228543 (Version 2)
Quarter: 2013Q3

REPORT INFORMATION
  Report Type: Spontaneous
  Country: US (occurrence: US)
  Receive Date: 20130412
  Receipt Date: 20130726
  Transmission Date: 20140515
  Serious: Yes (Other)
  Sender: FDA-Public Use
  Company Number: US-ROCHE-1205075

PATIENT
  Age: 54 Year
  Sex: Female

DRUGS (7)
  1. PEGASYS [Suspect]
     Indication: CHRONIC HEPATITIS C
     Route: 058
     Dates: start: 20130320
  2. PEGASYS [Suspect]
     Route: 065
     Dates: start: 20060523
  3. COPEGUS [Suspect]
     Indication: PRODUCT USED FOR UNKNOWN INDICATION
     Route: 065
     Dates: start: 20060523
  4. RIBAVIRIN [Suspect]
     Indication: CHRONIC HEPATITIS C
     Dosage: DIVIDED DOSES
     Route: 048
     Dates: start: 20130320
  5. RIBAVIRIN [Suspect]
     Route: 048
     Dates: start: 20130622
  6. TELAPREVIR [Suspect]
     Indication: CHRONIC HEPATITIS C
     Route: 065
     Dates: start: 20130320
  7. PAXIL [Concomitant]

REACTIONS (8)
  - Acute promyelocytic leukaemia [Unknown]
  - Rash [Unknown]
  - Headache [Unknown]
  - Depression [Unknown]
  - Anger [Unknown]
  - Blood count abnormal [Unknown]
  - Rash pruritic [Unknown]
  - Rash pustular [Unknown]
